FAERS Safety Report 13854542 (Version 1)
Quarter: 2017Q3

REPORT INFORMATION
  Report Type: Spontaneous
  Country: US (occurrence: US)
  Receive Date: 20170810
  Receipt Date: 20170810
  Transmission Date: 20171127
  Serious: Yes (Hospitalization, Disabling, Other)
  Sender: FDA-Public Use
  Company Number: US-PFIZER INC-2017338232

PATIENT
  Age: 49 Year
  Sex: Female
  Weight: 68.4 kg

DRUGS (2)
  1. XANAX [Suspect]
     Active Substance: ALPRAZOLAM
     Indication: PANIC ATTACK
     Dosage: 3 MG, DAILY
     Dates: start: 1994
  2. XANAX [Suspect]
     Active Substance: ALPRAZOLAM
     Indication: GENERALISED ANXIETY DISORDER
     Dosage: 0.5 MG, 1X/DAY

REACTIONS (9)
  - Panic attack [Unknown]
  - Cardiac disorder [Not Recovered/Not Resolved]
  - Hypotension [Unknown]
  - Chest pain [Unknown]
  - Anaemia [Not Recovered/Not Resolved]
  - Fatigue [Unknown]
  - Multiple sclerosis [Not Recovered/Not Resolved]
  - Tachycardia [Unknown]
  - Dizziness [Unknown]

NARRATIVE: CASE EVENT DATE: 201704
